FAERS Safety Report 5639502-9 (Version None)
Quarter: 2008Q1

REPORT INFORMATION
  Report Type: 
  Country: None (occurrence: None)
  Receive Date: 20080226
  Receipt Date: 20080214
  Transmission Date: 20080703
  Serious: Yes (Other)
  Sender: FDA-Public Use
  Company Number: US-PFIZER INC-2008016306

PATIENT
  Sex: Male
  Weight: 86.2 kg

DRUGS (9)
  1. CHANTIX [Suspect]
     Indication: EX-SMOKER
     Dates: start: 20080101, end: 20080214
  2. VITAMINS [Concomitant]
  3. VITAMINS [Concomitant]
  4. FLAXSEED OIL [Concomitant]
  5. FLAXSEED OIL [Concomitant]
  6. ALOE BARBADENSIS [Concomitant]
  7. ALOE BARBADENSIS [Concomitant]
  8. VITAMIN CAP [Concomitant]
  9. VITAMIN CAP [Concomitant]

REACTIONS (4)
  - AGGRESSION [None]
  - DEPRESSED MOOD [None]
  - FEELING ABNORMAL [None]
  - IRRITABILITY [None]
